FAERS Safety Report 7161273-8 (Version None)
Quarter: 2010Q4

REPORT INFORMATION
  Report Type: 
  Country: None (occurrence: None)
  Receive Date: 20101215
  Receipt Date: 20101208
  Transmission Date: 20110411
  Serious: Yes (Hospitalization)
  Sender: FDA-Public Use
  Company Number: US-AMGEN-USASP2010008195

PATIENT

DRUGS (1)
  1. ENBREL [Suspect]
     Indication: RHEUMATOID ARTHRITIS
     Dosage: 25 MG, 2 TIMES/WK
     Dates: start: 19981101

REACTIONS (6)
  - ARTHROPATHY [None]
  - DRY SKIN [None]
  - FALL [None]
  - OSTEOMYELITIS FUNGAL [None]
  - PELVIC FRACTURE [None]
  - PRURITUS [None]
